FAERS Safety Report 18013206 (Version 2)
Quarter: 2020Q3

REPORT INFORMATION
  Report Type: Spontaneous
  Country: US (occurrence: US)
  Receive Date: 20200713
  Receipt Date: 20200714
  Transmission Date: 20201103
  Serious: No
  Sender: FDA-Public Use
  Company Number: US-PFIZER INC-2020264659

PATIENT
  Age: 48 Year
  Sex: Female
  Weight: 92.53 kg

DRUGS (7)
  1. PERCOCET [OXYCODONE HYDROCHLORIDE;OXYCODONE TEREPHTHALATE;PARACETAMOL] [Concomitant]
     Active Substance: ACETAMINOPHEN\OXYCODONE HYDROCHLORIDE\OXYCODONE TEREPHTHALATE
     Indication: PAIN
     Dosage: UNK, 4X/DAY ((10/325MG 1 TABLET BY MOUTH AS NEEDED 4X DAILY))
     Route: 048
  2. BUTORPHANOL TARTRATE. [Suspect]
     Active Substance: BUTORPHANOL TARTRATE
     Indication: PAIN
     Dosage: UNK UNK, 1X/DAY (2MG 1ML INJECTION PER DAY)
     Dates: start: 202001
  3. BUTORPHANOL TARTRATE. [Suspect]
     Active Substance: BUTORPHANOL TARTRATE
     Indication: MIGRAINE
  4. BUTORPHANOL TARTRATE. [Suspect]
     Active Substance: BUTORPHANOL TARTRATE
     Indication: NERVE INJURY
  5. DILAUDID [Concomitant]
     Active Substance: HYDROMORPHONE HYDROCHLORIDE
     Indication: PAIN
     Dosage: 2 MG, AS NEEDED (2MG 1 TABLET BY MOUTH 2 TIMES A DAY AS NEEDED)
     Route: 048
  6. PROMETHAZINE [Concomitant]
     Active Substance: PROMETHAZINE HYDROCHLORIDE
     Indication: PAIN
  7. PROMETHAZINE [Concomitant]
     Active Substance: PROMETHAZINE HYDROCHLORIDE
     Indication: NAUSEA
     Dosage: UNK UNK, AS NEEDED (25MG/ML 1ML INJECTION 4 X A DAY AS NEEDED)

REACTIONS (12)
  - Respiratory disorder [Unknown]
  - Dyspnoea [Not Recovered/Not Resolved]
  - Somnolence [Unknown]
  - Impaired quality of life [Unknown]
  - Drug ineffective [Unknown]
  - Panic attack [Not Recovered/Not Resolved]
  - Pruritus [Not Recovered/Not Resolved]
  - Injection site pain [Unknown]
  - Therapeutic reaction time decreased [Unknown]
  - Intentional product use issue [Unknown]
  - Sedation [Unknown]
  - Loss of personal independence in daily activities [Unknown]

NARRATIVE: CASE EVENT DATE: 202001
